FAERS Safety Report 6568686-3 (Version None)
Quarter: 2010Q1

REPORT INFORMATION
  Report Type: 
  Country: None (occurrence: None)
  Receive Date: 20100203
  Receipt Date: 20100127
  Transmission Date: 20100710
  Serious: Yes (Disabling)
  Sender: FDA-Public Use
  Company Number: GB-MPIJNJ-2010-00672

PATIENT

DRUGS (9)
  1. VELCADE [Suspect]
     Indication: MULTIPLE MYELOMA
     Dosage: 2.3 MG, UNK
     Route: 042
     Dates: start: 20090827
  2. VELCADE [Suspect]
     Dosage: 1.8 MG, UNK
     Route: 042
  3. VELCADE [Suspect]
     Dosage: 0.9 MG, UNK
     Route: 042
     Dates: end: 20091102
  4. DILTIAZEM HCL [Concomitant]
     Indication: HYPERTENSION
     Dosage: 30 MG, UNK
  5. FLUCONAZOLE [Concomitant]
     Indication: PROPHYLAXIS
     Dosage: 50 MG, UNK
  6. PYRIDOXIN [Concomitant]
     Indication: NEUROPATHY PERIPHERAL
     Dosage: 50 MG, UNK
  7. AMITRIPTYLINE HCL [Concomitant]
     Indication: NEUROPATHY PERIPHERAL
     Dosage: 50 MG, UNK
  8. LANSOPRAZOLE [Concomitant]
     Indication: PROPHYLAXIS
     Dosage: 30 MG, UNK
  9. DEXAMETHASONE [Concomitant]
     Indication: MULTIPLE MYELOMA
     Dosage: 30 MG, UNK

REACTIONS (2)
  - DRUG INEFFECTIVE [None]
  - NEUROPATHY PERIPHERAL [None]
